FAERS Safety Report 26116900 (Version 1)
Quarter: 2025Q4

REPORT INFORMATION
  Report Type: Spontaneous
  Country: US (occurrence: None)
  Receive Date: 20251203
  Receipt Date: 20251203
  Transmission Date: 20260118
  Serious: Yes (Hospitalization)
  Sender: FDA-CTU
  Company Number: None

PATIENT
  Sex: Female

DRUGS (1)
  1. KISQALI [Suspect]
     Active Substance: RIBOCICLIB SUCCINATE
     Dosage: FREQUENCY : AS DIRECTED;?
     Route: 048
     Dates: start: 20251202

REACTIONS (2)
  - Urinary tract infection [None]
  - Deafness unilateral [None]
